FAERS Safety Report 10178027 (Version 1)
Quarter: 2014Q2

REPORT INFORMATION
  Report Type: Spontaneous
  Country: US (occurrence: US)
  Receive Date: 20140517
  Receipt Date: 20140517
  Transmission Date: 20141212
  Serious: Yes (Other)
  Sender: FDA-Public Use
  Company Number: US-ACCORD-023643

PATIENT
  Age: 57 Year
  Sex: Female
  Weight: 58.19 kg

DRUGS (2)
  1. CALCIUM/COLECALCIFEROL [Concomitant]
  2. CARBIDOPA LEVODOPA XR [Suspect]
     Indication: PARKINSONISM
     Dosage: DOSE UNIT: 25 MG/100 MG?DAILY DOSE: 75 MG/300 MG
     Route: 048
     Dates: start: 20140405

REACTIONS (2)
  - Pruritus [Not Recovered/Not Resolved]
  - Acquired claw toe [Not Recovered/Not Resolved]
